FAERS Safety Report 11148467 (Version 1)
Quarter: 2015Q2

REPORT INFORMATION
  Report Type: Spontaneous
  Country: CH (occurrence: PT)
  Receive Date: 20150529
  Receipt Date: 20150529
  Transmission Date: 20150821
  Serious: Yes (Other)
  Sender: FDA-Public Use
  Company Number: CH-LPDUSPRD-20150370

PATIENT
  Age: 79 Year
  Sex: Male

DRUGS (3)
  1. OLSAR PLUS [Concomitant]
     Active Substance: HYDROCHLOROTHIAZIDE\OLMESARTAN MEDOXOMIL
     Dosage: NOT PROVIDED
     Route: 065
  2. FERINJECT [Suspect]
     Active Substance: FERRIC CARBOXYMALTOSE
     Dosage: 50MG/500ML DILUTION
     Route: 041
     Dates: start: 20140318, end: 20140318
  3. CARBOPLATIN/GEMCITABINE [Concomitant]
     Dosage: DOSE NOT PROVIDED
     Route: 065

REACTIONS (3)
  - Wrong technique in drug usage process [Unknown]
  - Hypotension [Unknown]
  - Hyperhidrosis [Unknown]

NARRATIVE: CASE EVENT DATE: 20140318
